FAERS Safety Report 7325556 (Version 7)
Quarter: 2013Q2

REPORT INFORMATION
  Report Type: Report from Study
  Country: JP (occurrence: JP)
  Receive Date: 20100319
  Receipt Date: 20130620
  Transmission Date: 20140414
  Serious: Yes (Hospitalization, Other)
  Sender: FDA-Public Use
  Company Number: JP-GENZYME-THYM-1001417

PATIENT
  Age: 50 Year
  Sex: Female
  Weight: 43 kg

DRUGS (15)
  1. THYMOGLOBULIN [Suspect]
     Indication: APLASTIC ANAEMIA
     Dosage: 2.5 MG, QD
     Route: 042
     Dates: start: 20100310, end: 20100310
  2. THYMOGLOBULIN [Suspect]
     Dosage: 147.5 MG, QD
     Route: 042
     Dates: start: 20100310, end: 20100310
  3. THYMOGLOBULIN [Suspect]
     Dosage: 25 MG, QD
     Route: 042
     Dates: start: 20100317, end: 20100317
  4. THYMOGLOBULIN [Suspect]
     Dosage: 50 MG, QD
     Route: 042
     Dates: start: 20100318, end: 20100318
  5. THYMOGLOBULIN [Suspect]
     Dosage: 50 MG, QD
     Route: 042
     Dates: start: 20100320, end: 20100321
  6. THYMOGLOBULIN [Suspect]
     Dosage: 100 MG, QD
     Route: 042
     Dates: start: 20100322, end: 20100325
  7. THYMOGLOBULIN [Suspect]
     Dosage: 3.5 MG, Q12HR
     Route: 042
  8. DIPHENHYDRAMINE HYDROCHLORIDE [Concomitant]
     Indication: PREMEDICATION
     Dosage: UNK
     Route: 065
     Dates: start: 20100310, end: 20100310
  9. DIPHENHYDRAMINE HYDROCHLORIDE [Concomitant]
     Dosage: UNK
     Dates: start: 20100320, end: 20100325
  10. LOXOPROFEN SODIUM [Concomitant]
     Indication: PREMEDICATION
     Dosage: UNK
     Route: 065
     Dates: start: 20100310, end: 20100310
  11. LOXOPROFEN SODIUM [Concomitant]
     Dosage: UNK
     Dates: start: 20100320, end: 20100325
  12. NEORAL [Concomitant]
     Indication: APLASTIC ANAEMIA
     Dosage: UNK
     Route: 065
     Dates: start: 20100301
  13. METHYLPREDNISOLONE SODIUM SUCCINATE [Concomitant]
     Indication: PROPHYLAXIS
     Dosage: UNK
     Route: 065
     Dates: start: 20100310, end: 20100310
  14. METHYLPREDNISOLONE SODIUM SUCCINATE [Concomitant]
     Dosage: UNK
     Dates: start: 20100320, end: 20100325
  15. VALACICLOVIR HYDROCHLORIDE [Concomitant]
     Indication: PROPHYLAXIS
     Dosage: UNK
     Route: 065
     Dates: start: 20100310, end: 20100316

REACTIONS (6)
  - Liver disorder [Recovered/Resolved]
  - Pain [Unknown]
  - White blood cell count decreased [Recovered/Resolved]
  - Electrocardiogram QT prolonged [Recovered/Resolved]
  - Bradycardia [Recovered/Resolved]
  - Pyrexia [Recovered/Resolved]
